FAERS Safety Report 16280182 (Version 1)
Quarter: 2019Q2

REPORT INFORMATION
  Report Type: Other
  Country: NO (occurrence: NO)
  Receive Date: 20190507
  Receipt Date: 20190507
  Transmission Date: 20190711
  Serious: Yes (Hospitalization, Other)
  Sender: FDA-Public Use
  Company Number: NO-ASTELLAS-2019US019233

PATIENT
  Age: 30 Year
  Sex: Female

DRUGS (1)
  1. BETMIGA [Suspect]
     Active Substance: MIRABEGRON
     Indication: POLLAKIURIA
     Route: 048
     Dates: start: 20181005, end: 20190208

REACTIONS (7)
  - Malaise [Unknown]
  - Tachycardia [Not Recovered/Not Resolved]
  - Heart rate irregular [Unknown]
  - Hypertension [Recovered/Resolved]
  - Asthenia [Unknown]
  - Arrhythmia [Not Recovered/Not Resolved]
  - Extrasystoles [Unknown]

NARRATIVE: CASE EVENT DATE: 20190205
